FAERS Safety Report 26119034 (Version 1)
Quarter: 2025Q4

REPORT INFORMATION
  Report Type: Spontaneous
  Country: RU (occurrence: RU)
  Receive Date: 20251204
  Receipt Date: 20251204
  Transmission Date: 20260118
  Serious: Yes (Hospitalization, Other)
  Sender: ACCORD
  Company Number: RU-SANDOZ-SDZ2023RU075259

PATIENT
  Age: 15 Year
  Sex: Male

DRUGS (6)
  1. MYCOPHENOLATE MOFETIL [Suspect]
     Active Substance: MYCOPHENOLATE MOFETIL
     Indication: Immunosuppressant drug therapy
  2. TACROLIMUS [Suspect]
     Active Substance: TACROLIMUS
     Indication: Immunosuppressant drug therapy
  3. PREDNISOLONE [Suspect]
     Active Substance: PREDNISOLONE
     Indication: Immunosuppressant drug therapy
  4. CEFAZOLIN [Concomitant]
     Active Substance: CEFAZOLIN
     Indication: Antifungal prophylaxis
  5. VALGANCICLOVIR [Concomitant]
     Active Substance: VALGANCICLOVIR
     Indication: Antiviral prophylaxis
  6. CEFAZOLIN [Concomitant]
     Active Substance: CEFAZOLIN
     Indication: Antibiotic prophylaxis

REACTIONS (4)
  - Klebsiella infection [Recovering/Resolving]
  - Klebsiella sepsis [Recovering/Resolving]
  - Retroperitoneal abscess [Recovering/Resolving]
  - Pelvic venous thrombosis [Recovering/Resolving]
